FAERS Safety Report 4920129-9 (Version None)
Quarter: 2006Q1

REPORT INFORMATION
  Report Type: 
  Country: None (occurrence: None)
  Receive Date: 20060223
  Receipt Date: 20051128
  Transmission Date: 20060701
  Serious: Yes (Other)
  Sender: FDA-Public Use
  Company Number: ES-AMGEN-UK159331

PATIENT
  Sex: Female
  Weight: 50 kg

DRUGS (3)
  1. MIMPARA [Suspect]
     Indication: HYPERPARATHYROIDISM SECONDARY
     Route: 048
     Dates: start: 20051026, end: 20051030
  2. OMEPRAZOLE [Concomitant]
     Route: 048
     Dates: start: 20031005
  3. SEVELAMER HCL [Concomitant]
     Route: 048
     Dates: start: 20040601

REACTIONS (2)
  - PURPURA [None]
  - RASH PAPULAR [None]
